FAERS Safety Report 21849506 (Version 1)
Quarter: 2023Q1

REPORT INFORMATION
  Report Type: Report from Study
  Country: US (occurrence: US)
  Receive Date: 20230111
  Receipt Date: 20230111
  Transmission Date: 20230418
  Serious: No
  Sender: FDA-Public Use
  Company Number: US-ABBVIE-4265834

PATIENT
  Sex: Female

DRUGS (6)
  1. IMBRUVICA [Suspect]
     Active Substance: IBRUTINIB
     Indication: Chronic lymphocytic leukaemia
     Dosage: FORM STRENGTH 140 MILLIGRAM
     Route: 048
     Dates: start: 20180608, end: 20190615
  2. IMBRUVICA [Suspect]
     Active Substance: IBRUTINIB
     Indication: Chronic lymphocytic leukaemia
     Dosage: DAILY FOR 5 DAYS, THEN HOLD FOR 2 DAYS, FORM STRENGTH 140 MILLIGRAM
     Route: 048
     Dates: start: 20190615, end: 20191224
  3. IMBRUVICA [Suspect]
     Active Substance: IBRUTINIB
     Indication: Chronic lymphocytic leukaemia
     Dosage: EVERY MORNING FOR 5 DAYS, FOLLOWED BY 2 DAYS OFF, FORM STRENGTH 140 MILLIGRAM
     Route: 048
     Dates: start: 20191224, end: 20210212
  4. IMBRUVICA [Suspect]
     Active Substance: IBRUTINIB
     Indication: Chronic lymphocytic leukaemia
     Dosage: FORM STRENGTH 140 MILLIGRAM
     Route: 048
     Dates: start: 20210212, end: 20220210
  5. IMBRUVICA [Suspect]
     Active Substance: IBRUTINIB
     Indication: Chronic lymphocytic leukaemia
     Dosage: DAILY EVERY MORNING FOR 5 DAYS, FOLLOWED BY 2 DAYS OFF, FORM STRENGTH 140 MILLIGRAM,?THERAPY END ...
     Route: 048
     Dates: start: 20220210
  6. IMBRUVICA [Suspect]
     Active Substance: IBRUTINIB
     Indication: Chronic lymphocytic leukaemia
     Dosage: DAILY EVERY MORNING FOR 5 DAYS, FOLLOWED BY 2 DAYS OFF, FORM STRENGTH 140 MILLIGRAM
     Route: 048

REACTIONS (3)
  - Laboratory test abnormal [Unknown]
  - Diarrhoea [Unknown]
  - Nausea [Unknown]
